FAERS Safety Report 7469841-0 (Version None)
Quarter: 2011Q2

REPORT INFORMATION
  Report Type: 
  Country: None (occurrence: None)
  Receive Date: 20110510
  Receipt Date: 20110422
  Transmission Date: 20111010
  Serious: No
  Sender: FDA-Public Use
  Company Number: US-B.I. PHARMACEUTICALS,INC./RIDGEFIELD-2011-BP-05365BP

PATIENT
  Age: 69 Year
  Sex: Female

DRUGS (7)
  1. SYNTHROID [Concomitant]
  2. PRADAXA [Suspect]
     Indication: ATRIAL FIBRILLATION
     Dosage: 300 MG
     Route: 048
     Dates: start: 20110131
  3. ZOSTAVAX INJECTION [Suspect]
     Dates: start: 20110131
  4. TAMBOCOR [Concomitant]
  5. RAMIPRIL [Concomitant]
  6. CRESTOR [Concomitant]
  7. LASIX [Concomitant]

REACTIONS (2)
  - SKIN DISCOLOURATION [None]
  - CONTUSION [None]
